FAERS Safety Report 5932793-6 (Version None)
Quarter: 2008Q4

REPORT INFORMATION
  Report Type: 
  Country: None (occurrence: None)
  Receive Date: 20081028
  Receipt Date: 20081020
  Transmission Date: 20090506
  Serious: Yes (Hospitalization)
  Sender: FDA-Public Use
  Company Number: B0542476A

PATIENT
  Age: 88 Year
  Sex: Female

DRUGS (8)
  1. ZOVIRAX [Suspect]
     Indication: DRUG USE FOR UNKNOWN INDICATION
     Route: 042
     Dates: start: 20080916, end: 20080919
  2. RAMIPRIL [Concomitant]
     Route: 065
  3. ACEBUTOLOL [Concomitant]
     Route: 065
  4. ZALDIAR [Concomitant]
     Route: 065
  5. LASIX [Concomitant]
     Route: 065
  6. PREVISCAN [Concomitant]
     Route: 065
  7. ALLOPURINOL [Concomitant]
     Route: 065
  8. ZOLPIDEM [Concomitant]
     Route: 065

REACTIONS (3)
  - COMA [None]
  - CONFUSIONAL STATE [None]
  - DISTURBANCE IN ATTENTION [None]
